FAERS Safety Report 7621619 (Version 3)
Quarter: 2013Q2

REPORT INFORMATION
  Report Type: Report from Study
  Country: JP (occurrence: JP)
  Receive Date: 20101008
  Receipt Date: 20130403
  Transmission Date: 20140414
  Serious: Yes (Hospitalization)
  Sender: FDA-Public Use
  Company Number: PHHO2010JP13012

PATIENT
  Age: 59 Year
  Sex: Female
  Weight: 44 kg

DRUGS (8)
  1. ALISKIREN [Suspect]
     Indication: CARDIOVASCULAR DISORDER
     Dosage: CODE NOT BROKEN
     Route: 048
     Dates: start: 20080807
  2. FERROUS SULPHATE [Concomitant]
  3. ACECOL [Concomitant]
  4. LASIX [Concomitant]
  5. MEVALOTIN [Concomitant]
  6. NOVORAPID [Concomitant]
  7. ZYLORIC [Concomitant]
  8. RESCULA [Concomitant]

REACTIONS (11)
  - Decreased appetite [Not Recovered/Not Resolved]
  - Ear pain [Unknown]
  - Pelvic fluid collection [Unknown]
  - Inflammation [Unknown]
  - Pyrexia [Unknown]
  - Urinary tract infection [Recovered/Resolved]
  - C-reactive protein increased [Recovered/Resolved]
  - Endocarditis [Recovered/Resolved]
  - Anaemia of chronic disease [Recovered/Resolved]
  - Malaise [Recovered/Resolved]
  - Dental caries [Unknown]
